FAERS Safety Report 25645933 (Version 2)
Quarter: 2025Q3

REPORT INFORMATION
  Report Type: Spontaneous
  Country: JP (occurrence: JP)
  Receive Date: 20250805
  Receipt Date: 20250918
  Transmission Date: 20251021
  Serious: Yes (Hospitalization, Other)
  Sender: MERCK SHARP & DOHME LLC
  Company Number: JP-009507513-2315091

PATIENT
  Age: 55 Year
  Sex: Male

DRUGS (1)
  1. KEYTRUDA [Suspect]
     Active Substance: PEMBROLIZUMAB
     Indication: Lung neoplasm malignant
     Route: 065

REACTIONS (9)
  - Ascites [Unknown]
  - Immune-mediated enterocolitis [Unknown]
  - Infection [Unknown]
  - Hepatic function abnormal [Unknown]
  - Serum ferritin increased [Unknown]
  - Cytokine release syndrome [Unknown]
  - Pyrexia [Unknown]
  - Non-cardiogenic pulmonary oedema [Unknown]
  - Gastrointestinal oedema [Unknown]
